APPROVED DRUG PRODUCT: HYDROCODONE BITARTRATE AND IBUPROFEN
Active Ingredient: HYDROCODONE BITARTRATE; IBUPROFEN
Strength: 7.5MG;200MG
Dosage Form/Route: TABLET;ORAL
Application: A076642 | Product #001 | TE Code: AB
Applicant: AMNEAL PHARMACEUTICALS NY LLC
Approved: Oct 12, 2004 | RLD: No | RS: Yes | Type: RX